FAERS Safety Report 13841378 (Version 1)
Quarter: 2017Q3

REPORT INFORMATION
  Report Type: Other
  Country: MY (occurrence: MY)
  Receive Date: 20170807
  Receipt Date: 20170807
  Transmission Date: 20171127
  Serious: Yes (Other)
  Sender: FDA-Public Use
  Company Number: MY-TAKEDA-2017MPI006784

PATIENT
  Age: 53 Year
  Sex: Female

DRUGS (1)
  1. VELCADE [Suspect]
     Active Substance: BORTEZOMIB
     Indication: LYMPHOMA
     Dosage: UNK
     Route: 042

REACTIONS (5)
  - Mitral valve incompetence [Unknown]
  - Product use in unapproved indication [Unknown]
  - Off label use [Unknown]
  - Electrocardiogram T wave inversion [Unknown]
  - Ventricular hypokinesia [Unknown]
